FAERS Safety Report 6839282-5 (Version None)
Quarter: 2010Q3

REPORT INFORMATION
  Report Type: 
  Country: None (occurrence: None)
  Receive Date: 20100714
  Receipt Date: 20090630
  Transmission Date: 20110219
  Serious: No
  Sender: FDA-Public Use
  Company Number: US-KINGPHARMUSA00001-K200900777

PATIENT
  Sex: Female

DRUGS (1)
  1. BICILLIN L-A [Suspect]
     Indication: STREPTOCOCCAL INFECTION
     Dosage: UNK, SINGLE
     Dates: start: 20090501

REACTIONS (1)
  - HEPATIC ENZYME INCREASED [None]
